FAERS Safety Report 17333058 (Version 2)
Quarter: 2020Q1

REPORT INFORMATION
  Report Type: Spontaneous
  Country: JP (occurrence: JP)
  Receive Date: 20200128
  Receipt Date: 20200319
  Transmission Date: 20200409
  Serious: Yes (Hospitalization)
  Sender: FDA-Public Use
  Company Number: JP-INDIVIOR LIMITED-INDV-123325-2020

PATIENT
  Age: 7 Decade
  Sex: Female

DRUGS (1)
  1. LEPETAN 0.4 MG SUPPOSITORY [Suspect]
     Active Substance: BUPRENORPHINE HYDROCHLORIDE
     Indication: PAIN
     Dosage: 0.4 MILLIGRAM, QD
     Route: 065

REACTIONS (3)
  - Spinal stenosis [Recovered/Resolved]
  - Drug ineffective [Unknown]
  - Abdominal pain upper [Recovered/Resolved]
